FAERS Safety Report 13396949 (Version 1)
Quarter: 2017Q2

REPORT INFORMATION
  Report Type: Spontaneous
  Country: US (occurrence: US)
  Receive Date: 20170403
  Receipt Date: 20170403
  Transmission Date: 20170830
  Serious: Yes (Hospitalization, Other)
  Sender: FDA-Public Use
  Company Number: US-ELI_LILLY_AND_COMPANY-US201703011125

PATIENT
  Age: 41 Year
  Sex: Female

DRUGS (4)
  1. HUMALOG [Suspect]
     Active Substance: INSULIN LISPRO
     Indication: TYPE 2 DIABETES MELLITUS
     Dosage: UNK UNK, EACH EVENING, ON A SLIDING SCALE
     Route: 058
     Dates: start: 2014, end: 201611
  2. VICTOZA [Concomitant]
     Active Substance: LIRAGLUTIDE
     Dosage: UNK, UNKNOWN
     Route: 065
  3. HUMULIN N [Suspect]
     Active Substance: INSULIN HUMAN
     Indication: TYPE 2 DIABETES MELLITUS
     Dosage: UNK UNK, EACH EVENING, ON A SLIDING SCALE
     Route: 058
     Dates: start: 201611, end: 201702
  4. METFORMIN [Concomitant]
     Active Substance: METFORMIN HYDROCHLORIDE
     Dosage: UNK, UNKNOWN
     Route: 065

REACTIONS (9)
  - Swelling [Recovered/Resolved]
  - Ketoacidosis [Recovered/Resolved]
  - Ketoacidosis [Recovered/Resolved]
  - Ketoacidosis [Recovered/Resolved]
  - Blood glucose abnormal [Unknown]
  - Muscle spasms [Recovering/Resolving]
  - Sleep disorder [Recovering/Resolving]
  - Ketoacidosis [Recovered/Resolved]
  - Back pain [Recovering/Resolving]

NARRATIVE: CASE EVENT DATE: 201410
